FAERS Safety Report 6774003-6 (Version None)
Quarter: 2010Q2

REPORT INFORMATION
  Report Type: 
  Country: None (occurrence: None)
  Receive Date: 20100616
  Receipt Date: 20100616
  Transmission Date: 20101027
  Serious: Yes (Death)
  Sender: FDA-Public Use
  Company Number: None

PATIENT
  Sex: Male
  Weight: 96.4 kg

DRUGS (2)
  1. CELEBREX [Suspect]
     Indication: COLON CANCER
     Dosage: 400MG D2-21 EACH CYCLE BID PO
     Route: 048
     Dates: start: 20100413
  2. EPO906 [Suspect]
     Indication: COLON CANCER
     Dosage: 11 MG/M2 D1 EACH CYCLE IV
     Route: 042
     Dates: start: 20100420

REACTIONS (16)
  - ASTHENIA [None]
  - DEHYDRATION [None]
  - DEPRESSED LEVEL OF CONSCIOUSNESS [None]
  - DIARRHOEA [None]
  - GENERAL PHYSICAL HEALTH DETERIORATION [None]
  - HYPOVOLAEMIC SHOCK [None]
  - LEUKOCYTOSIS [None]
  - MENTAL STATUS CHANGES [None]
  - NAUSEA [None]
  - PLEURAL EFFUSION [None]
  - REFUSAL OF TREATMENT BY PATIENT [None]
  - RENAL FAILURE ACUTE [None]
  - SEPSIS [None]
  - SMALL INTESTINAL OBSTRUCTION [None]
  - TACHYCARDIA [None]
  - VOMITING [None]
